FAERS Safety Report 13836445 (Version 4)
Quarter: 2017Q3

REPORT INFORMATION
  Report Type: Spontaneous
  Country: US (occurrence: US)
  Receive Date: 20170804
  Receipt Date: 20170905
  Transmission Date: 20171127
  Serious: Yes (Death, Hospitalization, Disabling)
  Sender: FDA-Public Use
  Company Number: US-ACTELION-A-NJ2017-157418

PATIENT
  Age: 53 Year
  Sex: Male

DRUGS (39)
  1. TRACLEER [Suspect]
     Active Substance: BOSENTAN
     Indication: PULMONARY HYPERTENSION
     Dosage: 125 MG, BID
     Route: 048
     Dates: start: 20170109, end: 20170817
  2. ACETAMINOPHEN. [Concomitant]
     Active Substance: ACETAMINOPHEN
     Dosage: 325 MG, PRN
  3. ACIDOPHILUS [Concomitant]
     Active Substance: LACTOBACILLUS ACIDOPHILUS
     Dosage: 2 TABLETS, BID
     Route: 048
  4. LIORESAL [Concomitant]
     Active Substance: BACLOFEN
     Dosage: 20 MG, QD
     Route: 048
  5. BUMEX [Concomitant]
     Active Substance: BUMETANIDE
     Dosage: 1 MG, QD
     Route: 048
  6. TRACLEER [Suspect]
     Active Substance: BOSENTAN
     Dosage: 62.5 MG, BID
     Route: 048
     Dates: start: 20170104
  7. TREPROSTINIL [Concomitant]
     Active Substance: TREPROSTINIL
     Dosage: INHALE 180MCG, QID
     Route: 055
  8. BUMEX [Concomitant]
     Active Substance: BUMETANIDE
     Dosage: 0.5 MG, BID
     Route: 048
  9. DILAUDID [Concomitant]
     Active Substance: HYDROMORPHONE HYDROCHLORIDE
     Dosage: 2 MG, UNK
     Route: 048
  10. MICONAZOLE NITRATE. [Concomitant]
     Active Substance: MICONAZOLE NITRATE
     Dosage: UNK, PRN
     Route: 061
  11. TADALAFIL [Concomitant]
     Active Substance: TADALAFIL
     Dosage: 20 MG, QD
     Route: 048
  12. LOVENOX [Concomitant]
     Active Substance: ENOXAPARIN SODIUM
     Dosage: 80 MG, BID
     Route: 058
  13. LANOXIN [Concomitant]
     Active Substance: DIGOXIN
     Dosage: 125 MCG, UNK
     Route: 048
  14. ATIVAN [Concomitant]
     Active Substance: LORAZEPAM
     Dosage: 1 MG, UNK
     Route: 048
  15. ATIVAN [Concomitant]
     Active Substance: LORAZEPAM
     Dosage: 0.5 MG, TID
  16. OXYGEN. [Concomitant]
     Active Substance: OXYGEN
     Dosage: 5-8 L/MIN CONTINUOUS
     Route: 055
  17. PROTONIX [Concomitant]
     Active Substance: PANTOPRAZOLE SODIUM
     Dosage: 40 MG, UNK
     Route: 048
  18. TOBRAMYCIN. [Concomitant]
     Active Substance: TOBRAMYCIN
     Dosage: 180 MCG, QID
     Route: 055
  19. EFFER K 20 MEQ [Concomitant]
     Dosage: 20 MEQ, UNK
  20. CALCIUM CARBONATE. [Concomitant]
     Active Substance: CALCIUM CARBONATE
     Dosage: 1250/5 ML, BID
     Route: 048
  21. HALDOL [Concomitant]
     Active Substance: HALOPERIDOL
     Dosage: 1 MG, Q4HRS PRN
  22. ROXANOL [Concomitant]
     Active Substance: MORPHINE SULFATE
     Dosage: 0.25-5 ML PRN
  23. ZOFRAN [Concomitant]
     Active Substance: ONDANSETRON HYDROCHLORIDE
     Dosage: 4 MG, Q8HR PRN
  24. ZOLOFT [Concomitant]
     Active Substance: SERTRALINE HYDROCHLORIDE
     Dosage: 50 MG, QD
  25. DESYREL [Concomitant]
     Active Substance: TRAZODONE HYDROCHLORIDE
     Dosage: 100 MG, QPM
  26. IMODIUM [Concomitant]
     Active Substance: LOPERAMIDE HYDROCHLORIDE
     Dosage: 4 MG, UNK
     Route: 048
  27. SERTRALINE [Concomitant]
     Active Substance: SERTRALINE HYDROCHLORIDE
     Dosage: 50 MG, UNK
     Route: 048
  28. CIPRO [Concomitant]
     Active Substance: CIPROFLOXACIN HYDROCHLORIDE
     Dosage: 500 MG, BID
  29. REVATIO [Concomitant]
     Active Substance: SILDENAFIL CITRATE
     Dosage: 10 MG, TID
  30. COUMADIN [Concomitant]
     Active Substance: WARFARIN SODIUM
     Dosage: 2.5 MG, UNK
     Route: 048
  31. ACETAMINOPHEN. [Concomitant]
     Active Substance: ACETAMINOPHEN
     Dosage: 325 MG, Q4HRS PRN
     Route: 048
  32. AMINO ACIDS NOS W/PROTEINS NOS [Concomitant]
     Dosage: 30 ML, BID
     Route: 048
  33. CORDARONE [Concomitant]
     Active Substance: AMIODARONE HYDROCHLORIDE
     Dosage: 200 MG, UNK
     Route: 048
  34. COLLAGENASE SANTYL [Concomitant]
     Active Substance: COLLAGENASE CLOSTRIDIUM HISTOLYTICUM
     Dosage: 250 UNIT/GRAM, QD
     Route: 048
  35. GUAIFENESIN. [Concomitant]
     Active Substance: GUAIFENESIN
     Dosage: 400 MG, Q8H
     Route: 048
  36. VISTARIL [Concomitant]
     Active Substance: HYDROXYZINE PAMOATE
     Dosage: 25 MG, TID
     Route: 048
  37. XOPENEX [Concomitant]
     Active Substance: LEVALBUTEROL HYDROCHLORIDE
     Dosage: 1.25 MG, Q6HRS
     Route: 055
  38. REGLAN [Concomitant]
     Active Substance: METOCLOPRAMIDE HYDROCHLORIDE
     Dosage: 10 MG, Q6HRS
     Route: 048
  39. ROXANOL [Concomitant]
     Active Substance: MORPHINE SULFATE
     Dosage: 10 MG, PRN

REACTIONS (10)
  - Colostomy [Unknown]
  - Asthenia [Unknown]
  - Bronchial secretion retention [Unknown]
  - Respiratory tract infection [Unknown]
  - Pseudomonas infection [Fatal]
  - Impaired healing [Recovering/Resolving]
  - Acute respiratory failure [Fatal]
  - Anxiety [Unknown]
  - Decubitus ulcer [Recovering/Resolving]
  - Perineal injury [Unknown]
